FAERS Safety Report 19475107 (Version 1)
Quarter: 2021Q2

REPORT INFORMATION
  Report Type: Spontaneous
  Country: US (occurrence: US)
  Receive Date: 20210629
  Receipt Date: 20210629
  Transmission Date: 20210717
  Serious: No
  Sender: FDA-Public Use
  Company Number: US-SA-2021SA213076

PATIENT
  Sex: Female

DRUGS (16)
  1. METAXALONE. [Concomitant]
     Active Substance: METAXALONE
  2. CELECOXIB. [Concomitant]
     Active Substance: CELECOXIB
  3. DUPIXENT [Suspect]
     Active Substance: DUPILUMAB
     Indication: DERMATITIS ATOPIC
     Dosage: 300 MG, QOW
     Route: 058
  4. ROSUVASTATIN. [Concomitant]
     Active Substance: ROSUVASTATIN
  5. HYDROXYZINE [Concomitant]
     Active Substance: HYDROXYZINE HYDROCHLORIDE
  6. CLOBETASOL [Concomitant]
     Active Substance: CLOBETASOL
  7. LEVOTHYROXINE SODIUM. [Concomitant]
     Active Substance: LEVOTHYROXINE SODIUM
  8. TRAMADOL. [Concomitant]
     Active Substance: TRAMADOL
  9. ALBUTEROL SULFATE. [Concomitant]
     Active Substance: ALBUTEROL SULFATE
  10. ATENOLOL. [Concomitant]
     Active Substance: ATENOLOL
  11. OZEMPIC [Concomitant]
     Active Substance: SEMAGLUTIDE
  12. CETIRIZINE [Concomitant]
     Active Substance: CETIRIZINE HYDROCHLORIDE
  13. BUPROPION. [Concomitant]
     Active Substance: BUPROPION
  14. GABAPENTIN. [Concomitant]
     Active Substance: GABAPENTIN
  15. METFORMIN [Concomitant]
     Active Substance: METFORMIN HYDROCHLORIDE
  16. OMEPRAZOLE. [Concomitant]
     Active Substance: OMEPRAZOLE

REACTIONS (2)
  - Rash [Unknown]
  - Pruritus [Unknown]
